FAERS Safety Report 23115160 (Version 1)
Quarter: 2023Q4

REPORT INFORMATION
  Report Type: Spontaneous
  Country: PL (occurrence: PL)
  Receive Date: 20231027
  Receipt Date: 20231027
  Transmission Date: 20240110
  Serious: Yes (Other)
  Sender: FDA-Public Use
  Company Number: None

PATIENT
  Age: 58 Year
  Sex: Female
  Weight: 70 kg

DRUGS (2)
  1. CISPLATIN [Suspect]
     Active Substance: CISPLATIN
     Indication: Malignant respiratory tract neoplasm
     Dates: start: 20191119, end: 20191119
  2. ETOPOSIDE [Suspect]
     Active Substance: ETOPOSIDE
     Indication: Malignant respiratory tract neoplasm
     Dates: start: 20191119, end: 20191119

REACTIONS (1)
  - Neutropenia [Unknown]

NARRATIVE: CASE EVENT DATE: 20191210
